FAERS Safety Report 8266440-8 (Version None)
Quarter: 2012Q2

REPORT INFORMATION
  Report Type: 
  Country: None (occurrence: None)
  Receive Date: 20120406
  Receipt Date: 20120403
  Transmission Date: 20120825
  Serious: Yes (Hospitalization, Other)
  Sender: FDA-Public Use
  Company Number: US-MERCK-1112USA01227

PATIENT
  Age: 62 Year
  Sex: Female
  Weight: 70 kg

DRUGS (13)
  1. FOSAMAX [Suspect]
     Indication: OSTEOPOROSIS
     Route: 048
     Dates: start: 20050901, end: 20080101
  2. ALENDRONATE SODIUM [Suspect]
     Route: 048
     Dates: start: 20080218, end: 20080816
  3. CALCIUM (UNSPECIFIED) [Concomitant]
     Dosage: ^600 MG^
     Route: 048
  4. VITAMINS (UNSPECIFIED) [Concomitant]
     Route: 065
     Dates: start: 20000707
  5. ALENDRONATE SODIUM [Suspect]
     Route: 048
     Dates: start: 20081110, end: 20100917
  6. [THERAPY UNSPECIFIED] [Concomitant]
     Indication: HYPERCHOLESTEROLAEMIA
     Route: 048
  7. ATENOLOL [Concomitant]
     Route: 065
  8. PREMARIN [Concomitant]
     Route: 065
  9. FOSAMAX [Suspect]
     Route: 048
     Dates: start: 20000701
  10. [THERAPY UNSPECIFIED] [Concomitant]
     Indication: HYPERTENSION
     Route: 065
  11. CALCIUM CARBONATE [Concomitant]
     Route: 065
     Dates: start: 20000707
  12. HYDROCHLOROTHIAZIDE [Concomitant]
     Route: 048
  13. ASPIRIN [Concomitant]
     Route: 065

REACTIONS (21)
  - FIBROCYSTIC BREAST DISEASE [None]
  - CEREBRAL CALCIFICATION [None]
  - CATARACT [None]
  - UTERINE DISORDER [None]
  - ARTHRITIS [None]
  - BREAST DISORDER [None]
  - TRIGGER FINGER [None]
  - CYST [None]
  - OSTEOPENIA [None]
  - ROAD TRAFFIC ACCIDENT [None]
  - ARTHRALGIA [None]
  - OSTEOARTHRITIS [None]
  - OEDEMA PERIPHERAL [None]
  - BONE DISORDER [None]
  - MEMORY IMPAIRMENT [None]
  - FOOT FRACTURE [None]
  - HAND FRACTURE [None]
  - FEMUR FRACTURE [None]
  - SYNCOPE [None]
  - CAROTID ARTERY STENOSIS [None]
  - CEREBRAL ATROPHY [None]
